FAERS Safety Report 8992805 (Version 1)
Quarter: 2013Q1

REPORT INFORMATION
  Report Type: Spontaneous
  Country: US (occurrence: US)
  Receive Date: 20130102
  Receipt Date: 20130102
  Transmission Date: 20140127
  Serious: No
  Sender: FDA-Public Use
  Company Number: US-009507513-1212USA010075

PATIENT
  Sex: Female

DRUGS (3)
  1. TEMODAR [Suspect]
     Indication: BRAIN NEOPLASM MALIGNANT
     Dosage: 100 MG, QD
     Route: 048
     Dates: start: 20121130
  2. TEMODAR [Suspect]
     Indication: BRAIN NEOPLASM MALIGNANT
     Dosage: 20 MG, QD
     Route: 048
     Dates: start: 20121130
  3. TEMODAR [Suspect]
     Indication: BRAIN NEOPLASM MALIGNANT
     Dosage: 10 MG, QD
     Route: 048
     Dates: start: 20121130

REACTIONS (4)
  - Underdose [Unknown]
  - Accidental exposure to product [Unknown]
  - Capsule physical issue [Unknown]
  - No adverse event [Unknown]
